FAERS Safety Report 12096052 (Version 1)
Quarter: 2016Q1

REPORT INFORMATION
  Report Type: Other
  Country: US (occurrence: US)
  Receive Date: 20160220
  Receipt Date: 20160220
  Transmission Date: 20160526
  Serious: No
  Sender: FDA-Public Use
  Company Number: US-ACORDA-ACO_109980_2015

PATIENT
  Age: 52 Year
  Sex: Male

DRUGS (1)
  1. AMPYRA [Suspect]
     Active Substance: DALFAMPRIDINE
     Indication: GAIT DISTURBANCE
     Dosage: 10 MG, BID
     Route: 048
     Dates: end: 20150310

REACTIONS (5)
  - Gait disturbance [Unknown]
  - Balance disorder [Unknown]
  - Fatigue [Unknown]
  - Back pain [Unknown]
  - Therapy cessation [Unknown]

NARRATIVE: CASE EVENT DATE: 20150310
